FAERS Safety Report 24744624 (Version 1)
Quarter: 2024Q4

REPORT INFORMATION
  Report Type: Spontaneous
  Country: US (occurrence: None)
  Receive Date: 20241217
  Receipt Date: 20241217
  Transmission Date: 20250115
  Serious: Yes (Hospitalization)
  Sender: Public
  Company Number: None

PATIENT
  Age: 7 Month
  Sex: Male

DRUGS (3)
  1. SYNAGIS [Suspect]
     Active Substance: PALIVIZUMAB
     Indication: Cardiac failure congestive
     Dosage: FREQUENCY : MONTHLY;?
     Route: 030
     Dates: start: 202411
  2. SYNAGIS [Suspect]
     Active Substance: PALIVIZUMAB
     Indication: Cardiac failure congestive
     Dosage: FREQUENCY : MONTHLY;?
     Route: 030
     Dates: start: 202411
  3. EPINEPI-RINE INJ (1MLX10) [Concomitant]

REACTIONS (1)
  - Cardiac operation [None]

NARRATIVE: CASE EVENT DATE: 20241204
